FAERS Safety Report 7640205-X (Version None)
Quarter: 2011Q3

REPORT INFORMATION
  Report Type: 
  Country: None (occurrence: None)
  Receive Date: 20110728
  Receipt Date: 20110725
  Transmission Date: 20111222
  Serious: Yes (Life-Threatening, Hospitalization)
  Sender: FDA-Public Use
  Company Number: CA-BAYER-2011-064401

PATIENT
  Age: 79 Year
  Sex: Female
  Weight: 87 kg

DRUGS (8)
  1. ATACAND [Concomitant]
     Route: 048
  2. NORVASC [Concomitant]
     Route: 048
  3. ASPIRIN [Concomitant]
  4. AVELOX [Suspect]
     Dosage: 400 MG, QD
     Route: 048
  5. VITAMIN B-12 [Concomitant]
  6. VITAMIN D [Concomitant]
  7. FOLIC ACID [Concomitant]
  8. HYDROCHLOROTHIAZIDE [Concomitant]

REACTIONS (7)
  - BLOOD CREATININE INCREASED [None]
  - POLYURIA [None]
  - BLOOD POTASSIUM DECREASED [None]
  - CONFUSIONAL STATE [None]
  - GLUCOSE URINE PRESENT [None]
  - POLYDIPSIA [None]
  - URINE KETONE BODY PRESENT [None]
